FAERS Safety Report 13281700 (Version 2)
Quarter: 2017Q2

REPORT INFORMATION
  Report Type: Spontaneous
  Country: US (occurrence: US)
  Receive Date: 20170301
  Receipt Date: 20170420
  Transmission Date: 20170830
  Serious: Yes (Other)
  Sender: FDA-Public Use
  Company Number: US-PFIZER INC-2017084031

PATIENT
  Sex: Female

DRUGS (1)
  1. XELJANZ XR [Suspect]
     Active Substance: TOFACITINIB CITRATE
     Dosage: 11 MG, DAILY

REACTIONS (13)
  - Crepitations [Unknown]
  - Synovial disorder [Unknown]
  - Blood creatinine decreased [Unknown]
  - Asthma [Unknown]
  - White blood cell count increased [Unknown]
  - Cough [Unknown]
  - Arthralgia [Unknown]
  - Platelet count increased [Unknown]
  - Dyspnoea [Unknown]
  - Oedema peripheral [Unknown]
  - Joint contracture [Unknown]
  - Sjogren^s syndrome [Unknown]
  - Foreign body sensation in eyes [Unknown]
